FAERS Safety Report 12650653 (Version 1)
Quarter: 2016Q3

REPORT INFORMATION
  Report Type: Spontaneous
  Country: US (occurrence: None)
  Receive Date: 20160812
  Receipt Date: 20160812
  Transmission Date: 20161109
  Serious: Yes (Death)
  Sender: FDA-Public Use
  Company Number: None

PATIENT
  Age: 85 Year
  Sex: Male
  Weight: 73.4 kg

DRUGS (2)
  1. CLOPIDOGREL, 75 MG [Suspect]
     Active Substance: CLOPIDOGREL BISULFATE
     Route: 048
  2. ASPIRIN, 81 MG [Suspect]
     Active Substance: ASPIRIN
     Route: 048

REACTIONS (8)
  - Diverticulum intestinal haemorrhagic [None]
  - Dyspnoea [None]
  - Hypotension [None]
  - Confusional state [None]
  - Agonal death struggle [None]
  - Haemoglobin decreased [None]
  - Hypoglycaemia [None]
  - Pulse absent [None]

NARRATIVE: CASE EVENT DATE: 20150921
